FAERS Safety Report 14354970 (Version 1)
Quarter: 2018Q1

REPORT INFORMATION
  Report Type: Spontaneous
  Country: RO (occurrence: RO)
  Receive Date: 20180105
  Receipt Date: 20180105
  Transmission Date: 20180509
  Serious: Yes (Other)
  Sender: FDA-Public Use
  Company Number: RO-LUPIN PHARMACEUTICALS INC.-2017-07700

PATIENT
  Age: 45 Year
  Sex: Female

DRUGS (1)
  1. CIPROFLOXACIN. [Suspect]
     Active Substance: CIPROFLOXACIN
     Indication: PRODUCT USED FOR UNKNOWN INDICATION
     Dosage: UNK
     Route: 048

REACTIONS (9)
  - Leukopenia [Recovered/Resolved]
  - Paraesthesia [Recovered/Resolved]
  - Face oedema [Recovered/Resolved]
  - Splenomegaly [Recovered/Resolved]
  - Microcytic anaemia [Recovered/Resolved]
  - Hepatic steatosis [Recovered/Resolved]
  - Systemic inflammatory response syndrome [Recovered/Resolved]
  - Hypertriglyceridaemia [Recovered/Resolved]
  - Polyserositis [Recovered/Resolved]
